FAERS Safety Report 7972798-7 (Version None)
Quarter: 2011Q4

REPORT INFORMATION
  Report Type: 
  Country: None (occurrence: None)
  Receive Date: 20111213
  Receipt Date: 20111206
  Transmission Date: 20120403
  Serious: No
  Sender: FDA-Public Use
  Company Number: US-PFIZER INC-2011293308

PATIENT
  Sex: Female

DRUGS (2)
  1. ACETAMINOPHEN [Suspect]
     Dosage: UNK
  2. IBUPROFEN AND PSEUDOEPHEDRINE HCL [Suspect]
     Dosage: UNK

REACTIONS (1)
  - DRUG EFFECT DECREASED [None]
